FAERS Safety Report 5230225-7 (Version None)
Quarter: 2007Q1

REPORT INFORMATION
  Report Type: 
  Country: None (occurrence: None)
  Receive Date: 20070206
  Receipt Date: 20061009
  Transmission Date: 20070707
  Serious: No
  Sender: FDA-Public Use
  Company Number: US-GLAXOSMITHKLINE-A0622941A

PATIENT
  Sex: Male

DRUGS (5)
  1. PAXIL CR [Suspect]
     Indication: DEPRESSION
     Dosage: 25MG PER DAY
     Route: 048
  2. PAXIL [Suspect]
     Dosage: 20MG PER DAY
     Route: 048
  3. WELLBUTRIN XL [Concomitant]
  4. ASPIRIN [Concomitant]
  5. CRESTOR [Concomitant]

REACTIONS (3)
  - DRUG INEFFECTIVE [None]
  - MEDICATION RESIDUE [None]
  - UP AND DOWN PHENOMENON [None]
